FAERS Safety Report 5123106-0 (Version None)
Quarter: 2006Q4

REPORT INFORMATION
  Report Type: 
  Country: None (occurrence: None)
  Receive Date: 20061009
  Receipt Date: 20060927
  Transmission Date: 20070319
  Serious: Yes (Death, Other)
  Sender: FDA-Public Use
  Company Number: PHBS2006JP15027

PATIENT
  Age: 68 Year
  Sex: Female
  Weight: 45 kg

DRUGS (2)
  1. SANDIMMUNE [Suspect]
     Indication: BONE MARROW TRANSPLANT
     Dosage: UNK, UNK
     Dates: start: 20050725, end: 20050825
  2. NEORAL [Suspect]
     Indication: BONE MARROW TRANSPLANT
     Dosage: 100 MG/KG/DAY
     Dates: start: 20050825

REACTIONS (4)
  - GRAFT VERSUS HOST DISEASE [None]
  - IDIOPATHIC PNEUMONIA SYNDROME [None]
  - PNEUMONIA HERPES VIRAL [None]
  - RESPIRATORY FAILURE [None]
